FAERS Safety Report 6304263-7 (Version None)
Quarter: 2009Q3

REPORT INFORMATION
  Report Type: 
  Country: None (occurrence: None)
  Receive Date: 20090806
  Receipt Date: 20090723
  Transmission Date: 20100115
  Serious: Yes (Hospitalization)
  Sender: FDA-Public Use
  Company Number: 1000007882

PATIENT
  Age: 56 Year
  Sex: Female

DRUGS (9)
  1. ESCITALOPRAM [Suspect]
     Indication: DEPRESSION
     Dosage: 1 DOSAGE FORMS (1 DOSAGE FORMS, 1 IN 1 D), ORAL
     Route: 048
     Dates: start: 20090209, end: 20090210
  2. STRESAN [Suspect]
     Dosage: 2 DOSAGE FIRNS (2 DOSAGE FORMS, 1 IN 1 D), ORAL
     Route: 048
     Dates: start: 20090202, end: 20090210
  3. CRANBERRY [Suspect]
     Indication: PROPHYLAXIS URINARY TRACT INFECTION
     Dosage: 4 DOSAGE FORMS (4 DOSAGE FORMS, 1 IN 1 D), ORAL
     Route: 048
  4. CHRYSANTELLUM AMERICANUM [Suspect]
     Indication: HYPERLIPIDAEMIA
     Dosage: 1 DOSAGE FORMS (1 DOSAGE FORMS, 1 IN 1 D) ORAL
     Route: 048
  5. GINSENG [Concomitant]
  6. ELISOR [Concomitant]
  7. ESBERIVEN FORT [Concomitant]
  8. EXOMUC [Concomitant]
  9. RHINOFLUIMUCIL [Concomitant]

REACTIONS (9)
  - CONFUSIONAL STATE [None]
  - DELUSION [None]
  - ENCEPHALOPATHY [None]
  - GRAND MAL CONVULSION [None]
  - HYPONATRAEMIA [None]
  - POSTICTAL STATE [None]
  - RENAL TUBULAR DISORDER [None]
  - URINE SODIUM INCREASED [None]
  - VOMITING PROJECTILE [None]
